FAERS Safety Report 9982946 (Version 1)
Quarter: 2014Q1

REPORT INFORMATION
  Report Type: Report from Study
  Country: US (occurrence: US)
  Receive Date: 20140307
  Receipt Date: 20140307
  Transmission Date: 20141002
  Serious: No
  Sender: FDA-Public Use
  Company Number: US-ABBVIE-13P-163-1181274-00

PATIENT
  Age: 39 Year
  Sex: Male

DRUGS (3)
  1. HUMIRA [Suspect]
     Indication: PSORIASIS
     Dates: start: 201310
  2. TUMERIC HERBAL [Concomitant]
     Indication: PHYTOTHERAPY
  3. CLOBETASOL [Concomitant]
     Indication: PSORIASIS

REACTIONS (4)
  - Wrong technique in drug usage process [Unknown]
  - Incorrect product storage [Unknown]
  - Injection site pain [Not Recovered/Not Resolved]
  - Injection site pain [Not Recovered/Not Resolved]
